FAERS Safety Report 6965525-3 (Version None)
Quarter: 2010Q3

REPORT INFORMATION
  Report Type: 
  Country: None (occurrence: None)
  Receive Date: 20100903
  Receipt Date: 20100903
  Transmission Date: 20110219
  Serious: Yes (Hospitalization)
  Sender: FDA-Public Use
  Company Number: US-MPIJNJ-2006_03225

PATIENT

DRUGS (10)
  1. VELCADE [Suspect]
     Indication: MANTLE CELL LYMPHOMA STAGE IV
     Dosage: 1.30 MG/M2, UNK
     Route: 042
     Dates: start: 20060731, end: 20061201
  2. RITUXAN [Suspect]
     Indication: MANTLE CELL LYMPHOMA STAGE IV
     Dates: start: 20060731, end: 20061128
  3. CYCLOPHOSPHAMIDE [Suspect]
     Indication: MANTLE CELL LYMPHOMA STAGE IV
     Dates: start: 20060731, end: 20061128
  4. DOXORUBICIN HCL [Suspect]
     Indication: MANTLE CELL LYMPHOMA STAGE IV
     Dates: start: 20060731, end: 20061128
  5. VINCRISTINE [Suspect]
     Indication: MANTLE CELL LYMPHOMA STAGE IV
     Dates: start: 20060731, end: 20061128
  6. PREDNISONE [Suspect]
     Indication: MANTLE CELL LYMPHOMA STAGE IV
     Dates: start: 20060731, end: 20061128
  7. BACTRIM [Concomitant]
     Indication: PROPHYLAXIS
  8. VALTREX [Concomitant]
     Indication: PRODUCT USED FOR UNKNOWN INDICATION
  9. ARANESP [Concomitant]
     Indication: PRODUCT USED FOR UNKNOWN INDICATION
  10. NEUPOGEN [Concomitant]
     Indication: PRODUCT USED FOR UNKNOWN INDICATION

REACTIONS (6)
  - HAEMATURIA [None]
  - HYPERKALAEMIA [None]
  - PROSTATITIS [None]
  - PYELONEPHRITIS [None]
  - RENAL FAILURE ACUTE [None]
  - URINARY RETENTION [None]
